FAERS Safety Report 20075566 (Version 1)
Quarter: 2021Q4

REPORT INFORMATION
  Report Type: Report from Study
  Country: US (occurrence: US)
  Receive Date: 20211116
  Receipt Date: 20211116
  Transmission Date: 20220304
  Serious: No
  Sender: FDA-Public Use
  Company Number: US-RECORDATI RARE DISEASE INC.-2021001333

PATIENT

DRUGS (9)
  1. CYSTADROPS [Suspect]
     Active Substance: CYSTEAMINE HYDROCHLORIDE
     Indication: Cystinosis
     Dosage: 1 DROP IN EACH EYE 4 TIMES DAILY
     Dates: start: 202011
  2. CYSTADROPS [Suspect]
     Active Substance: CYSTEAMINE HYDROCHLORIDE
     Dosage: 1 DROP IN EACH EYE 4 TIMES DAILY
  3. CYSTADROPS [Suspect]
     Active Substance: CYSTEAMINE HYDROCHLORIDE
     Dosage: 1 DROP ON EACH EYE 4 TIMES A DAY
     Dates: start: 20201119
  4. ZOFRAN [Concomitant]
     Active Substance: ONDANSETRON HYDROCHLORIDE
     Indication: Nausea
  5. LEVOCARNITINE [Concomitant]
     Active Substance: LEVOCARNITINE
     Indication: Amino acid level decreased
     Dosage: 1 GRAM, TID
  6. SYNTHROID [Concomitant]
     Active Substance: LEVOTHYROXINE SODIUM
     Indication: Hypothyroidism
     Dosage: 25 MICROGRAM, DAILY
  7. PROCYSBI [Concomitant]
     Active Substance: CYSTEAMINE BITARTRATE
     Indication: Renal disorder
     Dosage: 575 MILLIGRAM, DAILY
  8. POTASSIUM CHLORIDE [Concomitant]
     Active Substance: POTASSIUM CHLORIDE
     Indication: Hypokalaemia
     Dosage: 20ML EQUIVALENT 3 TIMES A DAY
  9. K PHOS NEUTRAL [Concomitant]
     Active Substance: POTASSIUM PHOSPHATE, MONOBASIC\SODIUM PHOSPHATE, DIBASIC, ANHYDROUS\SODIUM PHOSPHATE, MONOBASIC, MON
     Indication: Blood phosphorus decreased
     Dosage: EVERY OTHER DAY

REACTIONS (8)
  - Eye swelling [Unknown]
  - Ocular hyperaemia [Unknown]
  - Eye pruritus [Unknown]
  - Eye irritation [Unknown]
  - Dry eye [Unknown]
  - Eczema eyelids [Not Recovered/Not Resolved]
  - Product dispensing issue [Recovered/Resolved]
  - Product lot number issue [Recovered/Resolved]

NARRATIVE: CASE EVENT DATE: 20210301
